FAERS Safety Report 20579455 (Version 2)
Quarter: 2022Q2

REPORT INFORMATION
  Report Type: Spontaneous
  Country: FR (occurrence: FR)
  Receive Date: 20220310
  Receipt Date: 20220425
  Transmission Date: 20220721
  Serious: Yes (Hospitalization)
  Sender: FDA-Public Use
  Company Number: None

PATIENT
  Age: 23 Year
  Sex: Female

DRUGS (7)
  1. ALPRAZOLAM [Suspect]
     Active Substance: ALPRAZOLAM
     Dosage: UNK
     Route: 048
  2. LYSERGIDE [Suspect]
     Active Substance: LYSERGIDE
     Dosage: 5 BLOTTERS / INTAKE MONTHLY
     Route: 048
  3. CLONAZEPAM [Suspect]
     Active Substance: CLONAZEPAM
     Dosage: 3 TO 4 MG DAILY
     Route: 048
  4. CANNABIS SATIVA SUBSP. INDICA TOP [Suspect]
     Active Substance: CANNABIS SATIVA SUBSP. INDICA TOP
     Dosage: 10 JOINTS DAILY
     Route: 055
  5. BROMAZEPAM [Suspect]
     Active Substance: BROMAZEPAM
     Dosage: 15 MG, 1X/DAY
     Route: 048
  6. KETAMINE [Suspect]
     Active Substance: KETAMINE
     Dosage: 1 TO 2 TIMES MONTHLY
     Route: 065
  7. CAFFEINE [Suspect]
     Active Substance: CAFFEINE
     Dosage: 200 MG / INTAKE
     Route: 048

REACTIONS (1)
  - Drug use disorder [Not Recovered/Not Resolved]
